FAERS Safety Report 20009042 (Version 2)
Quarter: 2021Q4

REPORT INFORMATION
  Report Type: Spontaneous
  Country: PT (occurrence: PT)
  Receive Date: 20211028
  Receipt Date: 20211203
  Transmission Date: 20220303
  Serious: Yes (Other)
  Sender: FDA-Public Use
  Company Number: PT-VERTEX PHARMACEUTICALS-2021-008533

PATIENT
  Age: 8 Year
  Sex: Male

DRUGS (16)
  1. ORKAMBI [Suspect]
     Active Substance: IVACAFTOR\LUMACAFTOR
     Indication: Cystic fibrosis
     Dosage: 2 TABLETS, BID
     Route: 048
     Dates: start: 20210506
  2. ESOMEPRAZOLE [Concomitant]
     Active Substance: ESOMEPRAZOLE
     Dosage: 10MG
  3. MENADIONE [Concomitant]
     Active Substance: MENADIONE
     Dosage: 1XSEMANA
  4. PANCREATIN [Concomitant]
     Active Substance: PANCRELIPASE
     Dosage: 1.5 CAPS BEFORE BREAKFAST, LUNCH,DINNER, 3CAP BEFORE  BREAKFAST, LUNCH,DINNER 1CAP WITH AM SNACK
  5. CHOLECALCIFEROL [Concomitant]
     Active Substance: CHOLECALCIFEROL
     Dosage: 3 DROPS PER DAY
  6. ASCORBIC ACID [Concomitant]
     Active Substance: ASCORBIC ACID
     Dosage: 5 DROPS
  7. FLUIMUCIL [Concomitant]
     Active Substance: ACETYLCYSTEINE
  8. PULMOZYME [Concomitant]
     Active Substance: DORNASE ALFA
     Dosage: 1 VIAL PER DAY, SOLUTION FOR INHALATION VIA NEBULIZATION
  9. MUCOCLEAR [SODIUM CHLORIDE] [Concomitant]
  10. MOVICOL PEDIATRICO [Concomitant]
     Dosage: 2 CARTONS, QD (POWDER FOR ORAL SOLUTION)
     Route: 048
  11. ALBUTEROL [Concomitant]
     Active Substance: ALBUTEROL
  12. IPRATROPIUM BROMIDE [Concomitant]
     Active Substance: IPRATROPIUM BROMIDE
  13. ACETYLCYSTEINE [Concomitant]
     Active Substance: ACETYLCYSTEINE
     Dosage: 5 ML, TID
  14. TOBRAMYCIN [Concomitant]
     Active Substance: TOBRAMYCIN
     Dosage: NEBULIZATION Q12H, IN 28-DAY CYCLES ALTERNATING  WITH COLISTIN
  15. COLISTIN [Concomitant]
     Active Substance: COLISTIN
     Dosage: NEBULIZED Q12H, IN 28-DAY CYCLES ALTERNATING WITH TOBRAMYCIN
  16. ATROVENT [Concomitant]
     Active Substance: IPRATROPIUM BROMIDE
     Dosage: SOLUTION FOR INHALATION VIA NEBULIZATION

REACTIONS (6)
  - Odynophagia [Recovered/Resolved]
  - Productive cough [Recovered/Resolved]
  - Nasopharyngitis [Recovered/Resolved]
  - Nasal obstruction [Recovered/Resolved]
  - Rhinorrhoea [Recovered/Resolved]
  - Fatigue [Recovered/Resolved]

NARRATIVE: CASE EVENT DATE: 20210509
